FAERS Safety Report 7942161 (Version 3)
Quarter: 2013Q4

REPORT INFORMATION
  Report Type: Report from Study
  Country: IT (occurrence: IT)
  Receive Date: 20110512
  Receipt Date: 20131122
  Transmission Date: 20140711
  Serious: Yes (Hospitalization, Disabling, Other)
  Sender: FDA-Public Use
  Company Number: IT-CELGENEUS-083-50794-11050229

PATIENT
  Age: 61 Year
  Sex: Female

DRUGS (6)
  1. VIDAZA [Suspect]
     Indication: MYELODYSPLASTIC SYNDROME
     Route: 058
     Dates: start: 20110416, end: 20110422
  2. EPREX [Concomitant]
     Indication: MYELODYSPLASTIC SYNDROME
     Dosage: 80IU, IN THOUSAND
     Route: 058
  3. EUTIROX [Concomitant]
     Indication: HYPOTHYROIDISM
     Route: 048
  4. ZOVIRAX [Concomitant]
     Indication: HERPES SIMPLEX
     Route: 048
     Dates: start: 20110427, end: 20110503
  5. ZYLORIC [Concomitant]
     Indication: HYPERURICAEMIA
     Route: 048
     Dates: start: 20110410, end: 20110503
  6. ZOFRAN [Concomitant]
     Indication: PROPHYLAXIS
     Route: 048
     Dates: start: 20110416, end: 20110422

REACTIONS (2)
  - Haemolytic anaemia [Recovered/Resolved]
  - Anaemia [Recovered/Resolved]
